FAERS Safety Report 24822760 (Version 1)
Quarter: 2025Q1

REPORT INFORMATION
  Report Type: Spontaneous
  Country: US (occurrence: US)
  Receive Date: 20250109
  Receipt Date: 20250109
  Transmission Date: 20250408
  Serious: No
  Sender: SANOFI AVENTIS
  Company Number: US-SANOFI-02362310

PATIENT
  Age: 70 Year
  Sex: Male

DRUGS (1)
  1. MULTAQ [Suspect]
     Active Substance: DRONEDARONE
     Dosage: 400 MG, BID
     Dates: start: 202407

REACTIONS (1)
  - Asthma [Unknown]

NARRATIVE: CASE EVENT DATE: 20241201
